FAERS Safety Report 25788145 (Version 1)
Quarter: 2025Q3

REPORT INFORMATION
  Report Type: Spontaneous
  Country: US (occurrence: US)
  Receive Date: 20250910
  Receipt Date: 20250910
  Transmission Date: 20251020
  Serious: Yes (Other)
  Sender: ALEXION PHARMACEUTICALS
  Company Number: US-AstraZeneca-CH-00946816A

PATIENT
  Age: 42 Year
  Sex: Male

DRUGS (5)
  1. LYNPARZA [Suspect]
     Active Substance: OLAPARIB
     Indication: Papillary thyroid cancer
  2. TRASTUZUMAB DERUXTECAN [Suspect]
     Active Substance: TRASTUZUMAB DERUXTECAN
     Indication: Papillary thyroid cancer
  3. DATROWAY [Suspect]
     Active Substance: DATOPOTAMAB DERUXTECAN-DLNK
     Indication: Papillary thyroid cancer
  4. SELPERCATINIB [Concomitant]
     Active Substance: SELPERCATINIB
     Route: 065
  5. ERYTHROMYCIN [Concomitant]
     Active Substance: ERYTHROMYCIN
     Route: 065

REACTIONS (6)
  - Pneumonitis [Recovering/Resolving]
  - Stomatitis [Recovering/Resolving]
  - Eye irritation [Recovering/Resolving]
  - Pruritus [Unknown]
  - Mucosal inflammation [Recovered/Resolved]
  - Dyspnoea [Unknown]
